FAERS Safety Report 17690244 (Version 1)
Quarter: 2020Q2

REPORT INFORMATION
  Report Type: Spontaneous
  Country: US (occurrence: US)
  Receive Date: 20200421
  Receipt Date: 20200421
  Transmission Date: 20200714
  Serious: No
  Sender: FDA-Public Use
  Company Number: US-EMD SERONO-9157364

PATIENT
  Sex: Female

DRUGS (1)
  1. MAVENCLAD [Suspect]
     Active Substance: CLADRIBINE
     Indication: MULTIPLE SCLEROSIS
     Dosage: FIRST YEAR TREATMENT.
     Dates: start: 20191111

REACTIONS (4)
  - Asthenia [Unknown]
  - Gait disturbance [Unknown]
  - Multiple sclerosis [Unknown]
  - Fatigue [Unknown]
